FAERS Safety Report 9806182 (Version 1)
Quarter: 2014Q1

REPORT INFORMATION
  Report Type: Spontaneous
  Country: US (occurrence: US)
  Receive Date: 20140109
  Receipt Date: 20140109
  Transmission Date: 20141002
  Serious: Yes (Disabling)
  Sender: FDA-Public Use
  Company Number: US-PFIZER INC-2014004183

PATIENT
  Age: 76 Year
  Sex: Male
  Weight: 88.89 kg

DRUGS (3)
  1. LATANOPROST [Suspect]
     Indication: GLAUCOMA
     Dosage: 1 GTT, 1X/DAY
     Route: 047
     Dates: start: 201303
  2. AZOPT [Concomitant]
     Indication: DIABETIC RETINOPATHY
     Dosage: UNK, 3X/DAY
     Route: 047
  3. ALPHAGAN-P [Concomitant]
     Indication: DIABETIC RETINOPATHY
     Dosage: 1 GTT, 1X/DAY
     Route: 047

REACTIONS (5)
  - Hearing disability [Unknown]
  - Eye irritation [Unknown]
  - Eye pruritus [Unknown]
  - Drug ineffective [Unknown]
  - Dry eye [Unknown]
